FAERS Safety Report 6601780-7 (Version None)
Quarter: 2010Q1

REPORT INFORMATION
  Report Type: 
  Country: None (occurrence: None)
  Receive Date: 20100225
  Receipt Date: 20100215
  Transmission Date: 20100710
  Serious: Yes (Other)
  Sender: FDA-Public Use
  Company Number: US-PFIZER INC-2009306661

PATIENT
  Sex: Female
  Weight: 90.7 kg

DRUGS (8)
  1. GABAPENTIN [Suspect]
     Indication: NEUROPATHY PERIPHERAL
     Dosage: 300 MG, TWO IN THE MORNING ONE IN THE AFTERNOON AND ONE IN THE NIGHT
     Route: 048
     Dates: start: 20080101, end: 20100106
  2. GABAPENTIN [Suspect]
     Indication: NEURALGIA
  3. FLAGYL [Suspect]
     Indication: LIVER ABSCESS
     Dosage: UNK
  4. TOPROL-XL [Concomitant]
     Indication: HYPERTENSION
     Dosage: 12.5 MG, 2X/DAY
     Route: 048
  5. WARFARIN SODIUM [Concomitant]
     Indication: ANTICOAGULANT THERAPY
     Dosage: 5 MG FOR THE FIRST 6 DAYS, 7.5 MG ON THE SEVENTH DAY
     Route: 048
  6. ZESTRIL [Concomitant]
     Indication: HYPERTENSION
     Dosage: 40 MG, 2X/DAY
     Route: 048
  7. CARDURA [Concomitant]
     Indication: HYPERTENSION
     Dosage: 1 MG, 1X/DAY
     Route: 048
  8. HYDROCHLOROTHIAZIDE [Concomitant]
     Indication: HYPERTENSION
     Dosage: 12.5 MG, 1X/DAY
     Route: 048

REACTIONS (4)
  - DRUG INEFFECTIVE [None]
  - PAIN [None]
  - PERIPHERAL SENSORY NEUROPATHY [None]
  - WALKING AID USER [None]
